FAERS Safety Report 19901487 (Version 1)
Quarter: 2021Q3

REPORT INFORMATION
  Report Type: Spontaneous
  Country: US (occurrence: US)
  Receive Date: 20210930
  Receipt Date: 20210930
  Transmission Date: 20211014
  Serious: Yes (Other)
  Sender: FDA-Public Use
  Company Number: US-ASTELLAS-2021US028582

PATIENT
  Sex: Female

DRUGS (3)
  1. XOSPATA [Suspect]
     Active Substance: GILTERITINIB
     Indication: ALLOGENIC STEM CELL TRANSPLANTATION
     Route: 048
     Dates: start: 20210603, end: 20210628
  2. XOSPATA [Suspect]
     Active Substance: GILTERITINIB
     Indication: LEUKAEMIA
  3. TACROLIMUS. [Concomitant]
     Active Substance: TACROLIMUS
     Indication: PRODUCT USED FOR UNKNOWN INDICATION
     Dosage: UNK UNK, UNKNOWN FREQ.
     Route: 065

REACTIONS (2)
  - Cardiomyopathy [Unknown]
  - Product use in unapproved indication [Unknown]
